FAERS Safety Report 9820698 (Version 1)
Quarter: 2013Q4

REPORT INFORMATION
  Report Type: Spontaneous
  Country: US (occurrence: None)
  Receive Date: 20131028
  Receipt Date: 20131028
  Transmission Date: 20140711
  Serious: Yes (Other)
  Sender: FDA-Public Use
  Company Number: 2013US001382

PATIENT
  Age: 32 Year
  Sex: Male
  Weight: 85 kg

DRUGS (8)
  1. ICLUSIG [Suspect]
     Indication: CHROMOSOME ANALYSIS ABNORMAL
     Route: 048
     Dates: start: 20130301, end: 20130312
  2. ICLUSIG [Suspect]
     Indication: CHRONIC MYELOID LEUKAEMIA
     Route: 048
     Dates: start: 20130301, end: 20130312
  3. ADVIL (IBUPROFEN) [Concomitant]
  4. ACYCLOVIR (ACYCLOVIR) [Concomitant]
  5. BACTRIM (SULFAMETHOXAZOLE, TRIMETHOPRIM) [Concomitant]
  6. PROCHLORPERAZINE (PROCHLORPERAZINE) [Concomitant]
  7. DOCUSATE (DOCUSATE) [Concomitant]
  8. SENNA (SENNA) [Concomitant]

REACTIONS (5)
  - Rash papular [None]
  - Pleural effusion [None]
  - Abdominal pain upper [None]
  - Alanine aminotransferase increased [None]
  - Aspartate aminotransferase increased [None]
